FAERS Safety Report 17203252 (Version 6)
Quarter: 2020Q2

REPORT INFORMATION
  Report Type: Spontaneous
  Country: FR (occurrence: FR)
  Receive Date: 20191226
  Receipt Date: 20200511
  Transmission Date: 20200713
  Serious: Yes (Hospitalization, Other)
  Sender: FDA-Public Use
  Company Number: FR-009507513-1912FRA008750

PATIENT
  Sex: Female
  Weight: 47 kg

DRUGS (1)
  1. NEXPLANON [Suspect]
     Active Substance: ETONOGESTREL
     Indication: CONTRACEPTION
     Dosage: 1 DOSAGE FORM (68 MILLIGRAM IMPLANT) FOR SUBCUTANEOUS  USE; IN RIGHT ARM
     Route: 058
     Dates: start: 20190621

REACTIONS (14)
  - Myalgia [Unknown]
  - Migraine [Not Recovered/Not Resolved]
  - Complication of device removal [Not Recovered/Not Resolved]
  - Dyspnoea [Not Recovered/Not Resolved]
  - Hot flush [Unknown]
  - Respiratory disorder [Unknown]
  - Complication associated with device [Recovered/Resolved]
  - Device embolisation [Not Recovered/Not Resolved]
  - Device dislocation [Not Recovered/Not Resolved]
  - Device breakage [Not Recovered/Not Resolved]
  - Device kink [Not Recovered/Not Resolved]
  - Complication of device removal [Not Recovered/Not Resolved]
  - Chest pain [Not Recovered/Not Resolved]
  - Surgery [Unknown]

NARRATIVE: CASE EVENT DATE: 2019
